FAERS Safety Report 10169128 (Version 1)
Quarter: 2014Q2

REPORT INFORMATION
  Report Type: Spontaneous
  Country: US (occurrence: US)
  Receive Date: 20140513
  Receipt Date: 20140513
  Transmission Date: 20141212
  Serious: No
  Sender: FDA-Public Use
  Company Number: US-TARO-2013P1007660

PATIENT
  Age: 19 Month
  Sex: Male
  Weight: 12.7 kg

DRUGS (3)
  1. CETIRIZINE HCL ORAL SOLUTION ALLERGY 1 MG/ML OTC [Suspect]
     Route: 048
     Dates: start: 20130604, end: 20130604
  2. MULTIVITAMIN WITH FLUORIDE [Concomitant]
  3. IBUPROFEN [Concomitant]

REACTIONS (8)
  - Irritability [Recovering/Resolving]
  - Screaming [Recovered/Resolved]
  - Crying [Recovered/Resolved]
  - Poor quality sleep [Recovered/Resolved]
  - Ear infection [Not Recovered/Not Resolved]
  - Eye swelling [Not Recovered/Not Resolved]
  - Rhinorrhoea [Not Recovered/Not Resolved]
  - Nasal congestion [Not Recovered/Not Resolved]
